FAERS Safety Report 18026927 (Version 3)
Quarter: 2020Q4

REPORT INFORMATION
  Report Type: Report from Study
  Country: IL (occurrence: IL)
  Receive Date: 20200716
  Receipt Date: 20201119
  Transmission Date: 20210113
  Serious: Yes (Hospitalization)
  Sender: FDA-Public Use
  Company Number: IL-AMGEN-ISRSL2019030728

PATIENT
  Age: 82 Year
  Sex: Female

DRUGS (2)
  1. REPATHA [Suspect]
     Active Substance: EVOLOCUMAB
     Dosage: 140 MILLIGRAM, QMO
     Route: 065
  2. REPATHA [Suspect]
     Active Substance: EVOLOCUMAB
     Indication: HYPERCHOLESTEROLAEMIA
     Dosage: 140 MILLIGRAM, Q2WK
     Route: 065
     Dates: start: 20190218

REACTIONS (18)
  - Asthenia [Recovered/Resolved]
  - Chest pain [Unknown]
  - Inappropriate schedule of product administration [Unknown]
  - Abdominal pain [Not Recovered/Not Resolved]
  - Diarrhoea [Unknown]
  - Dizziness [Recovered/Resolved]
  - Confusional state [Unknown]
  - Product storage error [Unknown]
  - Fall [Unknown]
  - Pruritus [Unknown]
  - Hot flush [Unknown]
  - Urinary tract infection [Unknown]
  - Skin discolouration [Unknown]
  - Cystitis noninfective [Unknown]
  - Off label use [Unknown]
  - Pain [Unknown]
  - Contusion [Unknown]
  - Dry skin [Unknown]

NARRATIVE: CASE EVENT DATE: 2019
